FAERS Safety Report 6585951-4 (Version None)
Quarter: 2010Q1

REPORT INFORMATION
  Report Type: 
  Country: None (occurrence: None)
  Receive Date: 20100216
  Receipt Date: 20100216
  Transmission Date: 20100710
  Serious: Yes (Hospitalization)
  Sender: FDA-Public Use
  Company Number: None

PATIENT
  Age: 75 Year
  Sex: Female
  Weight: 77.1115 kg

DRUGS (1)
  1. ALENFRONATE GENERIC FOR 70MG TEVA [Suspect]
     Indication: OSTEOPOROSIS
     Dosage: ONE TABLET BY MOUTH ONCE A WEEK PO
     Route: 048
     Dates: start: 20100204, end: 20100211

REACTIONS (2)
  - CHEST PAIN [None]
  - DYSPNOEA EXERTIONAL [None]
